FAERS Safety Report 4348399-9 (Version None)
Quarter: 2004Q2

REPORT INFORMATION
  Report Type: 
  Country: None (occurrence: None)
  Receive Date: 20040422
  Receipt Date: 20040413
  Transmission Date: 20050107
  Serious: Yes (Other)
  Sender: FDA-Public Use
  Company Number: 2004-04-0522

PATIENT
  Age: 19 Year
  Sex: Female

DRUGS (1)
  1. CELESTAMINE TAB [Suspect]
     Indication: URTICARIA
     Dosage: ORAL
     Route: 048

REACTIONS (3)
  - BLOOD PRESSURE DECREASED [None]
  - NAUSEA [None]
  - VOMITING [None]
